FAERS Safety Report 5830015-8 (Version None)
Quarter: 2008Q3

REPORT INFORMATION
  Report Type: 
  Country: None (occurrence: None)
  Receive Date: 20080722
  Receipt Date: 20080414
  Transmission Date: 20090109
  Serious: Yes (Other)
  Sender: FDA-Public Use
  Company Number: 2008BI010010

PATIENT
  Sex: Male

DRUGS (1)
  1. AVONEX [Suspect]
     Indication: MULTIPLE SCLEROSIS
     Dosage: IM
     Route: 030
     Dates: start: 20000501, end: 20020701

REACTIONS (6)
  - BACK DISORDER [None]
  - BALANCE DISORDER [None]
  - BLADDER DISORDER [None]
  - CONVULSION [None]
  - FATIGUE [None]
  - NEURALGIA [None]
